FAERS Safety Report 6803533-3 (Version None)
Quarter: 2010Q2

REPORT INFORMATION
  Report Type: 
  Country: None (occurrence: None)
  Receive Date: 20100628
  Receipt Date: 20100618
  Transmission Date: 20101027
  Serious: Yes (Other)
  Sender: FDA-Public Use
  Company Number: JP-JNJFOC-20100606380

PATIENT
  Age: 9 Year

DRUGS (4)
  1. RISPERDAL [Suspect]
     Indication: AUTISM SPECTRUM DISORDER
     Route: 048
  2. RISPERDAL [Suspect]
     Route: 048
  3. RISPERDAL [Suspect]
     Route: 048
  4. YOKUKAN-SAN [Concomitant]
     Route: 048

REACTIONS (6)
  - ANAEMIA [None]
  - CONSTIPATION [None]
  - DECREASED APPETITE [None]
  - DROOLING [None]
  - ELECTROENCEPHALOGRAM ABNORMAL [None]
  - RESTLESSNESS [None]
